FAERS Safety Report 14326747 (Version 2)
Quarter: 2018Q1

REPORT INFORMATION
  Report Type: Spontaneous
  Country: US (occurrence: US)
  Receive Date: 20171227
  Receipt Date: 20180122
  Transmission Date: 20180509
  Serious: No
  Sender: FDA-Public Use
  Company Number: US-TEVA-2017-US-836672

PATIENT
  Sex: Female

DRUGS (1)
  1. NORETHINDRONE W/ETHINYLESTRADIOL [Suspect]
     Active Substance: ETHINYL ESTRADIOL\NORETHINDRONE
     Indication: MENSTRUAL CYCLE MANAGEMENT
     Route: 065
     Dates: start: 20171108

REACTIONS (2)
  - Muscle spasms [Unknown]
  - Drug ineffective [Unknown]
